FAERS Safety Report 4483637-3 (Version None)
Quarter: 2004Q4

REPORT INFORMATION
  Report Type: 
  Country: None (occurrence: None)
  Receive Date: 20041022
  Receipt Date: 20041022
  Transmission Date: 20050328
  Serious: Yes (Death)
  Sender: FDA-Public Use
  Company Number: None

PATIENT
  Age: 32 Year
  Sex: Male
  Weight: 82.5547 kg

DRUGS (4)
  1. PROZAC [Suspect]
     Indication: MAJOR DEPRESSION
     Dosage: 20 MG PO
     Route: 048
     Dates: start: 20040902, end: 20040910
  2. NEVIRAPINE [Concomitant]
  3. LAMIVUDINE [Concomitant]
  4. STAVUDINE [Concomitant]

REACTIONS (1)
  - COMPLETED SUICIDE [None]
